FAERS Safety Report 13517457 (Version 1)
Quarter: 2017Q2

REPORT INFORMATION
  Report Type: Spontaneous
  Country: US (occurrence: US)
  Receive Date: 20170505
  Receipt Date: 20170505
  Transmission Date: 20170830
  Serious: Yes (Hospitalization)
  Sender: FDA-Public Use
  Company Number: None

PATIENT
  Age: 62 Year
  Sex: Male
  Weight: 55.3 kg

DRUGS (6)
  1. HCTZ [Concomitant]
     Active Substance: HYDROCHLOROTHIAZIDE
  2. BOTOX [Concomitant]
     Active Substance: ONABOTULINUMTOXINA
  3. BC ARTHRITIS [Suspect]
     Active Substance: ASPIRIN\CAFFEINE
     Indication: HEADACHE
     Route: 048
  4. MIRALAX [Concomitant]
     Active Substance: POLYETHYLENE GLYCOL 3350
  5. OXYCODONE [Concomitant]
     Active Substance: OXYCODONE
  6. DEXILANT [Concomitant]
     Active Substance: DEXLANSOPRAZOLE

REACTIONS (6)
  - Coagulopathy [None]
  - Dehydration [None]
  - Encephalopathy [None]
  - Vitamin B12 deficiency [None]
  - Accidental overdose [None]
  - Malnutrition [None]

NARRATIVE: CASE EVENT DATE: 20170112
